FAERS Safety Report 21138810 (Version 1)
Quarter: 2022Q3

REPORT INFORMATION
  Report Type: Spontaneous
  Country: CA (occurrence: None)
  Receive Date: 20220727
  Receipt Date: 20220727
  Transmission Date: 20221026
  Serious: Yes (Other)
  Sender: FDA-Public Use
  Company Number: 2022A262154

PATIENT
  Sex: Female
  Weight: 58.1 kg

DRUGS (11)
  1. CRESTOR [Suspect]
     Active Substance: ROSUVASTATIN CALCIUM
     Indication: Blood cholesterol increased
     Route: 048
  2. CRESTOR [Suspect]
     Active Substance: ROSUVASTATIN CALCIUM
     Indication: Blood cholesterol increased
     Route: 048
  3. EZETIMIBE [Concomitant]
     Active Substance: EZETIMIBE
     Dosage: 10.0MG UNKNOWN
  4. PROMETRIUM [Concomitant]
     Active Substance: PROGESTERONE
     Dosage: 100.0MG UNKNOWN
  5. IMOVANE [Concomitant]
     Active Substance: ZOPICLONE
     Dosage: 5.0MG UNKNOWN
  6. DAVIGO [Concomitant]
     Dosage: 10.0MG UNKNOWN
  7. COENZYME Q10 [Concomitant]
     Active Substance: DIETARY SUPPLEMENT\UBIDECARENONE
     Dosage: 100.0MG UNKNOWN
  8. KRILL OIL [Concomitant]
     Active Substance: DIETARY SUPPLEMENT\KRILL OIL
  9. VITAMIN D 2000 IU [Concomitant]
  10. MAGNESIUM BISGLYCINATE [Concomitant]
  11. VITAMIN C [Concomitant]
     Active Substance: ASCORBIC ACID
     Dosage: 1000.0MG UNKNOWN

REACTIONS (7)
  - Lipoprotein (a) increased [Unknown]
  - Extra dose administered [Unknown]
  - Cognitive disorder [Unknown]
  - Insomnia [Unknown]
  - Headache [Unknown]
  - Myalgia [Unknown]
  - Arthralgia [Unknown]
